FAERS Safety Report 19855760 (Version 1)
Quarter: 2021Q3

REPORT INFORMATION
  Report Type: Spontaneous
  Country: US (occurrence: US)
  Receive Date: 20210917
  Receipt Date: 20210917
  Transmission Date: 20211014
  Serious: Yes (Death)
  Sender: FDA-Public Use
  Company Number: None

PATIENT
  Age: 63 Year
  Sex: Male

DRUGS (1)
  1. VELTASSA [Suspect]
     Active Substance: PATIROMER
     Dosage: ?          OTHER DOSE:16.8 GRAMS;?
     Route: 048
     Dates: start: 20190826, end: 20210915

REACTIONS (1)
  - Death [None]

NARRATIVE: CASE EVENT DATE: 20210915
